FAERS Safety Report 15509646 (Version 1)
Quarter: 2018Q4

REPORT INFORMATION
  Report Type: Spontaneous
  Country: US (occurrence: US)
  Receive Date: 20181010
  Receipt Date: 20181010
  Transmission Date: 20190205
  Serious: No
  Sender: FDA-Public Use
  Company Number: None

PATIENT
  Age: 62 Year
  Sex: Male

DRUGS (1)
  1. INVEGA [Suspect]
     Active Substance: PALIPERIDONE
     Route: 030

REACTIONS (5)
  - Erythema [None]
  - Mental disorder [None]
  - Pruritus [None]
  - Rash [None]
  - Homeless [None]

NARRATIVE: CASE EVENT DATE: 20180706
